FAERS Safety Report 12521882 (Version 1)
Quarter: 2016Q3

REPORT INFORMATION
  Report Type: Spontaneous
  Country: DK (occurrence: DK)
  Receive Date: 20160701
  Receipt Date: 20160701
  Transmission Date: 20161109
  Serious: Yes (Other)
  Sender: FDA-Public Use
  Company Number: DK-BAYER-2016-123425

PATIENT
  Age: 26 Year
  Sex: Female

DRUGS (1)
  1. MIRENA [Suspect]
     Active Substance: LEVONORGESTREL
     Dosage: 20 MCG/24HR, CONT
     Route: 015
     Dates: start: 201307

REACTIONS (6)
  - Twin pregnancy [None]
  - Drug ineffective [None]
  - Foetal death [None]
  - Pregnancy with contraceptive device [None]
  - Premature labour [None]
  - Post abortion haemorrhage [None]

NARRATIVE: CASE EVENT DATE: 2015
